FAERS Safety Report 6526078-7 (Version None)
Quarter: 2009Q4

REPORT INFORMATION
  Report Type: 
  Country: None (occurrence: None)
  Receive Date: 20091222
  Receipt Date: 20091207
  Transmission Date: 20100525
  Serious: Yes (Hospitalization, Other)
  Sender: FDA-Public Use
  Company Number: 091218-0001236

PATIENT

DRUGS (5)
  1. ELSPAR [Suspect]
     Indication: CHEMOTHERAPY
  2. MERCAPTOPURINE [Suspect]
     Indication: CHEMOTHERAPY
  3. CYTARABINE [Suspect]
     Indication: CHEMOTHERAPY
  4. VINCRISTINE [Suspect]
     Indication: CHEMOTHERAPY
  5. CYCLOPHOSPHAMIDE [Suspect]
     Indication: CHEMOTHERAPY

REACTIONS (1)
  - HEPATOTOXICITY [None]
